FAERS Safety Report 4778948-8 (Version None)
Quarter: 2005Q3

REPORT INFORMATION
  Report Type: 
  Country: None (occurrence: None)
  Receive Date: 20050926
  Receipt Date: 20050908
  Transmission Date: 20060218
  Serious: Yes (Disabling)
  Sender: FDA-Public Use
  Company Number: GBWYE964608SEP05

PATIENT
  Age: 69 Year
  Sex: Female
  Weight: 63.5 kg

DRUGS (6)
  1. ENBREL [Suspect]
     Indication: RHEUMATOID ARTHRITIS
     Route: 058
  2. PREDNISOLONE [Concomitant]
     Indication: RHEUMATOID ARTHRITIS
     Dates: start: 19940101
  3. ENALAPRIL [Concomitant]
     Indication: HYPERTENSION
     Dates: start: 19960101
  4. CO-PROXAMOL [Concomitant]
     Indication: RHEUMATOID ARTHRITIS
     Dates: start: 19960101
  5. ZOTON [Concomitant]
     Indication: GASTRIC DISORDER
     Dates: start: 19960101
  6. INSULIN [Concomitant]
     Indication: DIABETES MELLITUS
     Dosage: 16 UNITS/10 UNITS
     Dates: start: 20050501

REACTIONS (6)
  - ABASIA [None]
  - EATING DISORDER [None]
  - FEELING ABNORMAL [None]
  - GAIT DISTURBANCE [None]
  - NAUSEA [None]
  - VERTIGO [None]
